FAERS Safety Report 6438249-9 (Version None)
Quarter: 2009Q4

REPORT INFORMATION
  Report Type: 
  Country: None (occurrence: None)
  Receive Date: 20091112
  Receipt Date: 20091029
  Transmission Date: 20100525
  Serious: Yes (Other)
  Sender: FDA-Public Use
  Company Number: PHHY2009FR47605

PATIENT
  Age: 89 Year
  Sex: Female

DRUGS (1)
  1. ZOLEDRONATE T29581++BM [Suspect]
     Dosage: 4 MG, QMO

REACTIONS (3)
  - FATIGUE [None]
  - PHLEBITIS [None]
  - PYREXIA [None]
